FAERS Safety Report 22725559 (Version 2)
Quarter: 2023Q4

REPORT INFORMATION
  Report Type: Report from Study
  Country: US (occurrence: CA)
  Receive Date: 20230719
  Receipt Date: 20231219
  Transmission Date: 20240110
  Serious: No
  Sender: FDA-Public Use
  Company Number: US-HLS-202300273

PATIENT

DRUGS (1)
  1. CLOZAPINE [Suspect]
     Active Substance: CLOZAPINE
     Indication: Product use in unapproved indication
     Dosage: CLOZAPINE AT 25 MG QD THAT WAS BEING GRADUALLY?INCREASED.
     Route: 048

REACTIONS (2)
  - Neutrophil count increased [Unknown]
  - White blood cell count increased [Unknown]
